FAERS Safety Report 13965061 (Version 2)
Quarter: 2017Q3

REPORT INFORMATION
  Report Type: Spontaneous
  Country: CA (occurrence: CA)
  Receive Date: 20170913
  Receipt Date: 20170920
  Transmission Date: 20171128
  Serious: Yes (Other)
  Sender: FDA-Public Use
  Company Number: CA-SA-2017SA165976

PATIENT
  Age: 73 Year
  Sex: Male

DRUGS (2)
  1. APIDRA SOLOSTAR [Suspect]
     Active Substance: INSULIN GLULISINE
     Dosage: 7-8 UNITS
     Route: 058
     Dates: start: 2015
  2. SOLOSTAR [Suspect]
     Active Substance: DEVICE
     Dates: start: 2015

REACTIONS (3)
  - Transient ischaemic attack [Unknown]
  - Hyperglycaemia [Unknown]
  - Device issue [Unknown]

NARRATIVE: CASE EVENT DATE: 201708
